FAERS Safety Report 4646727-8 (Version None)
Quarter: 2005Q2

REPORT INFORMATION
  Report Type: 
  Country: None (occurrence: None)
  Receive Date: 20050427
  Receipt Date: 20050308
  Transmission Date: 20051028
  Serious: Yes (Hospitalization, Other)
  Sender: FDA-Public Use
  Company Number: FR-GLAXOSMITHKLINE-B0374340A

PATIENT
  Age: 67 Year
  Sex: Female

DRUGS (3)
  1. ZENTEL [Suspect]
     Indication: ANISAKIASIS
     Dosage: 800MG PER DAY
     Route: 048
     Dates: start: 20041201, end: 20050115
  2. AMLOR [Concomitant]
     Dosage: 5MG PER DAY
     Route: 048
  3. SYMBICORT [Concomitant]
     Indication: ASTHMA
     Dosage: 2PUFF PER DAY
     Route: 055

REACTIONS (6)
  - ALLERGIC GRANULOMATOUS ANGIITIS [None]
  - CLUMSINESS [None]
  - DIFFICULTY IN WALKING [None]
  - EOSINOPHILIA [None]
  - NEUROPATHY PERIPHERAL [None]
  - PARAESTHESIA [None]
